FAERS Safety Report 17826307 (Version 2)
Quarter: 2020Q2

REPORT INFORMATION
  Report Type: Spontaneous
  Country: CA (occurrence: CA)
  Receive Date: 20200526
  Receipt Date: 20200526
  Transmission Date: 20200714
  Serious: Yes (Other)
  Sender: FDA-Public Use
  Company Number: CA-ADVANZ PHARMA-202005005455

PATIENT

DRUGS (7)
  1. METHOTREXATE. [Suspect]
     Active Substance: METHOTREXATE
     Indication: PRODUCT USED FOR UNKNOWN INDICATION
     Dosage: 20 MG, Q2M
     Route: 048
     Dates: start: 20130308, end: 20130601
  2. PREDNISONE. [Suspect]
     Active Substance: PREDNISONE
     Indication: PRODUCT USED FOR UNKNOWN INDICATION
     Route: 065
  3. FISH OIL [Concomitant]
     Active Substance: FISH OIL
     Dosage: UNK
  4. VITAMIN D 2000 [Concomitant]
     Active Substance: VITAMIN D NOS
     Dosage: UNK
  5. LEFLUNOMIDE. [Suspect]
     Active Substance: LEFLUNOMIDE
     Indication: PRODUCT USED FOR UNKNOWN INDICATION
     Dosage: FILM-COATED TABLET
     Route: 065
     Dates: start: 20121201, end: 20130308
  6. HYDROXYCHLOROQUINE [Suspect]
     Active Substance: HYDROXYCHLOROQUINE
     Indication: PRODUCT USED FOR UNKNOWN INDICATION
     Dosage: 200 MG, BID
     Route: 065
     Dates: start: 20130101, end: 20130601
  7. FOLIC ACID. [Concomitant]
     Active Substance: FOLIC ACID
     Dosage: UNK

REACTIONS (11)
  - Treatment failure [Unknown]
  - Skin lesion [Unknown]
  - Swelling [Unknown]
  - Drug ineffective [Unknown]
  - Chest discomfort [Unknown]
  - Arthralgia [Unknown]
  - Malaise [Unknown]
  - Product use issue [Unknown]
  - Condition aggravated [Unknown]
  - Gastrointestinal disorder [Unknown]
  - Off label use [Unknown]
